FAERS Safety Report 11281254 (Version 2)
Quarter: 2015Q3

REPORT INFORMATION
  Report Type: Spontaneous
  Country: US (occurrence: US)
  Receive Date: 20150717
  Receipt Date: 20150921
  Transmission Date: 20151125
  Serious: No
  Sender: FDA-Public Use
  Company Number: US-GLAXOSMITHKLINE-US2015GSK085355

PATIENT
  Sex: Female

DRUGS (9)
  1. MOTRIN [Suspect]
     Active Substance: IBUPROFEN
     Indication: MUSCLE SPASMS
     Dosage: UNK
     Dates: end: 1970
  2. BUSPAR [Suspect]
     Active Substance: BUSPIRONE HYDROCHLORIDE
     Indication: STRESS
  3. TORADOL [Suspect]
     Active Substance: KETOROLAC TROMETHAMINE
     Indication: MIGRAINE
     Route: 030
  4. VISTARIL [Suspect]
     Active Substance: HYDROXYZINE PAMOATE
     Indication: VOMITING
  5. METHOTREXATE [Suspect]
     Active Substance: METHOTREXATE
     Indication: NEUROPATHY PERIPHERAL
     Dosage: UNK
     Dates: end: 2013
  6. MORPHINE SULFATE SOLUTION FOR INJECTION [Suspect]
     Active Substance: MORPHINE
     Indication: PAIN PROPHYLAXIS
  7. ATROPINE. [Suspect]
     Active Substance: ATROPINE
     Indication: PRODUCT USED FOR UNKNOWN INDICATION
  8. IMITREX [Suspect]
     Active Substance: SUMATRIPTAN\SUMATRIPTAN SUCCINATE
     Indication: MIGRAINE
     Route: 058
  9. ELAVIL [Suspect]
     Active Substance: AMITRIPTYLINE HYDROCHLORIDE
     Indication: STRESS

REACTIONS (11)
  - Headache [Unknown]
  - Heart rate increased [Unknown]
  - Urticaria [Unknown]
  - Drug hypersensitivity [Unknown]
  - Swelling [Unknown]
  - Vomiting [Unknown]
  - Surgery [Unknown]
  - Pruritus [Unknown]
  - Rash generalised [Unknown]
  - Pharyngeal oedema [Unknown]
  - Malaise [Unknown]
